FAERS Safety Report 9835979 (Version 3)
Quarter: 2014Q2

REPORT INFORMATION
  Report Type: Report from Study
  Country: US (occurrence: US)
  Receive Date: 20140122
  Receipt Date: 20140605
  Transmission Date: 20141212
  Serious: Yes (Other)
  Sender: FDA-Public Use
  Company Number: PHEH2014US001441

PATIENT
  Age: 27 Year
  Sex: Female
  Weight: 59.6 kg

DRUGS (6)
  1. GILENYA [Suspect]
     Indication: MULTIPLE SCLEROSIS
     Dosage: 0.5 MG, QD
     Route: 048
     Dates: start: 20110505, end: 20131215
  2. NEURONTIN [Concomitant]
     Dosage: 300 MG, QD
     Route: 048
     Dates: start: 20140213
  3. DIMETHYL FUMARATE [Concomitant]
     Indication: MULTIPLE SCLEROSIS
     Dosage: 1 DF, BID
     Route: 048
     Dates: start: 20140217
  4. BACLOFEN [Concomitant]
     Dosage: 10 MG, TID
     Route: 048
     Dates: start: 20140326
  5. RESTORIL [Concomitant]
     Dosage: 15 MG, QD
     Route: 048
     Dates: start: 20140408
  6. BUTALBITAL, ACETAMINOPHEN AND CAFFEINE [Concomitant]
     Dosage: 1 DF, Q6H
     Route: 048
     Dates: start: 20140418

REACTIONS (4)
  - Multiple sclerosis [Unknown]
  - Central nervous system lesion [Unknown]
  - Insomnia [Unknown]
  - Drug ineffective [Unknown]
